FAERS Safety Report 7304559-6 (Version None)
Quarter: 2011Q1

REPORT INFORMATION
  Report Type: 
  Country: None (occurrence: None)
  Receive Date: 20110222
  Receipt Date: 20101112
  Transmission Date: 20110831
  Serious: No
  Sender: FDA-Public Use
  Company Number: PHHY2010BR61099

PATIENT
  Sex: Female

DRUGS (4)
  1. LEPONEX [Suspect]
     Dosage: 25 MG, UNK
  2. HYGROTON [Concomitant]
  3. CARVEDILOL [Concomitant]
     Dosage: UNK
  4. EXELON [Concomitant]

REACTIONS (1)
  - WRONG TECHNIQUE IN DRUG USAGE PROCESS [None]
